FAERS Safety Report 20614890 (Version 2)
Quarter: 2022Q2

REPORT INFORMATION
  Report Type: Other
  Country: FR (occurrence: FR)
  Receive Date: 20220321
  Receipt Date: 20220404
  Transmission Date: 20220721
  Serious: Yes (Death)
  Sender: FDA-Public Use
  Company Number: None

PATIENT

DRUGS (6)
  1. AMIODARONE [Suspect]
     Active Substance: AMIODARONE
     Indication: Medication error
     Dosage: 200 MILLIGRAM, QD
     Route: 048
     Dates: start: 20220209, end: 20220209
  2. GABAPENTIN [Suspect]
     Active Substance: GABAPENTIN
     Indication: Medication error
     Dosage: 100 MILLIGRAM, QD
     Route: 048
     Dates: start: 20220209, end: 20220209
  3. ACEBUTOLOL [Suspect]
     Active Substance: ACEBUTOLOL
     Indication: Medication error
     Dosage: 200 MILLIGRAM, QD
     Route: 048
     Dates: start: 20220209, end: 20220209
  4. CANDESARTAN CILEXETIL\HYDROCHLOROTHIAZIDE [Suspect]
     Active Substance: CANDESARTAN CILEXETIL\HYDROCHLOROTHIAZIDE
     Indication: Medication error
     Dosage: 16 MILLIGRAM, QD
     Route: 048
     Dates: start: 20220209, end: 20220209
  5. RILMENIDINE PHOSPHATE [Suspect]
     Active Substance: RILMENIDINE PHOSPHATE
     Indication: Medication error
     Dosage: 1 MILLIGRAM, QD
     Route: 048
     Dates: start: 20220209, end: 20220209
  6. LOXOPROFEN SODIUM [Suspect]
     Active Substance: LOXOPROFEN SODIUM
     Indication: Medication error
     Dosage: 5 MILLIGRAM, QD
     Route: 048
     Dates: start: 20220209, end: 20220209

REACTIONS (1)
  - Sudden death [Fatal]

NARRATIVE: CASE EVENT DATE: 20220209
